FAERS Safety Report 9282639 (Version 1)
Quarter: 2013Q2

REPORT INFORMATION
  Report Type: Report from Study
  Country: PL (occurrence: PL)
  Receive Date: 20130510
  Receipt Date: 20130510
  Transmission Date: 20140414
  Serious: Yes (Hospitalization)
  Sender: FDA-Public Use
  Company Number: PL-BRISTOL-MYERS SQUIBB COMPANY-18857524

PATIENT
  Age: 63 Year
  Sex: Male
  Weight: 101 kg

DRUGS (7)
  1. CISPLATIN [Suspect]
     Indication: NON-SMALL CELL LUNG CANCER
     Dosage: LAST DOSE:11JAN2011
     Route: 042
     Dates: start: 20101014
  2. NECITUMUMAB [Suspect]
     Indication: NON-SMALL CELL LUNG CANCER
     Dosage: LIQUID?LAST DOSE:10JAN2011
     Route: 042
     Dates: start: 20101014
  3. GEMCITABINE HCL [Suspect]
     Indication: NON-SMALL CELL LUNG CANCER
     Dosage: VIAL?LAST DOSE:10JAN2011
     Route: 042
     Dates: start: 20101014
  4. FORADIL [Concomitant]
  5. HYDROCHLOROTHIAZIDE [Concomitant]
  6. EUTHYROX [Concomitant]
  7. FRAGMIN [Concomitant]
     Indication: PROPHYLAXIS

REACTIONS (1)
  - Coronary artery disease [Recovered/Resolved with Sequelae]
